FAERS Safety Report 9514015 (Version 1)
Quarter: 2013Q3

REPORT INFORMATION
  Report Type: Report from Study
  Country: CH (occurrence: CH)
  Receive Date: 20130910
  Receipt Date: 20130910
  Transmission Date: 20140515
  Serious: Yes (Other)
  Sender: FDA-Public Use
  Company Number: CH-MYLANLABS-2013S1019664

PATIENT
  Age: 69 Year
  Sex: Male
  Weight: 60 kg

DRUGS (4)
  1. TACROLIMUS [Suspect]
     Indication: ACCIDENTAL OVERDOSE
     Dosage: UNKNOWN; RECEIVED HIGH DOSE DAILY FOR 4D
     Route: 048
  2. TACROLIMUS [Suspect]
     Indication: IMMUNOSUPPRESSANT DRUG THERAPY
     Dosage: UNKNOWN; RECEIVED HIGH DOSE DAILY FOR 4D
     Route: 048
  3. TACROLIMUS [Suspect]
     Indication: ACCIDENTAL OVERDOSE
     Dosage: UNKNOWN
     Route: 048
  4. TACROLIMUS [Suspect]
     Indication: IMMUNOSUPPRESSANT DRUG THERAPY
     Dosage: UNKNOWN
     Route: 048

REACTIONS (5)
  - Tremor [Recovered/Resolved]
  - Encephalopathy [Recovered/Resolved]
  - Accidental overdose [Recovered/Resolved]
  - Extrapyramidal disorder [Recovered/Resolved]
  - Renal impairment [Recovered/Resolved]
